FAERS Safety Report 4524031-6 (Version None)
Quarter: 2004Q4

REPORT INFORMATION
  Report Type: 
  Country: None (occurrence: None)
  Receive Date: 20041209
  Receipt Date: 20041125
  Transmission Date: 20050328
  Serious: Yes (Death, Life-Threatening, Other)
  Sender: FDA-Public Use
  Company Number: 2004-DE-05986GD

PATIENT

DRUGS (3)
  1. NEVIRAPINE (NEVIRAPINE) (NEVIRAPINE) [Suspect]
     Indication: HUMAN IMMUNODEFICIENCY VIRUS TRANSMISSION
     Dosage: 2 MG/KG, PO; ONCE
     Route: 048
  2. ZIDOUVIDINE (ZIDOUVIDINE) (SIR) [Suspect]
     Indication: HUMAN IMMUNODEFICIENCY VIRUS TRANSMISSION
     Dosage: 4 MG/KG TWICE PER DAY, PO
     Route: 048
  3. BACTRIM [Concomitant]

REACTIONS (14)
  - DIARRHOEA [None]
  - DRUG EXPOSURE DURING PREGNANCY [None]
  - GASTROENTERITIS [None]
  - HIV INFECTION [None]
  - INFECTION [None]
  - MALARIA [None]
  - MALNUTRITION [None]
  - MENINGITIS [None]
  - ORAL SOFT TISSUE DISORDER [None]
  - PNEUMONIA [None]
  - RASH [None]
  - SEPSIS [None]
  - SKIN DISORDER [None]
  - TUBERCULOSIS [None]
